FAERS Safety Report 24769509 (Version 5)
Quarter: 2025Q3

REPORT INFORMATION
  Report Type: Report from Study
  Country: AR (occurrence: AR)
  Receive Date: 20241224
  Receipt Date: 20250829
  Transmission Date: 20251021
  Serious: Yes (Hospitalization, Other)
  Sender: AMGEN
  Company Number: AR-AMGEN-ARGSL2024241314

PATIENT
  Age: 37 Year
  Sex: Female

DRUGS (2)
  1. VECTIBIX [Suspect]
     Active Substance: PANITUMUMAB
     Indication: Colorectal cancer
     Route: 065
     Dates: start: 20241127, end: 202412
  2. VECTIBIX [Suspect]
     Active Substance: PANITUMUMAB
     Route: 065
     Dates: start: 20250205

REACTIONS (12)
  - Skin burning sensation [Unknown]
  - Adnexa uteri pain [Unknown]
  - Metastases to liver [Unknown]
  - Rash [Not Recovered/Not Resolved]
  - Pruritus [Unknown]
  - Pyrexia [Unknown]
  - Nausea [Unknown]
  - Hypersensitivity [Unknown]
  - Stomatitis [Unknown]
  - Drug hypersensitivity [Unknown]
  - Central venous catheterisation [Unknown]
  - Influenza like illness [Unknown]

NARRATIVE: CASE EVENT DATE: 20240101
